FAERS Safety Report 10581109 (Version 1)
Quarter: 2014Q4

REPORT INFORMATION
  Report Type: Spontaneous
  Country: US (occurrence: US)
  Receive Date: 20141113
  Receipt Date: 20141113
  Transmission Date: 20150529
  Serious: Yes (Other)
  Sender: FDA-Public Use
  Company Number: US-ELI_LILLY_AND_COMPANY-US201411003607

PATIENT
  Sex: Male

DRUGS (1)
  1. HUMALOG [Suspect]
     Active Substance: INSULIN LISPRO
     Indication: TYPE 2 DIABETES MELLITUS
     Dosage: UNK, OTHER
     Route: 058
     Dates: start: 2000

REACTIONS (6)
  - Procedural complication [Unknown]
  - Blood glucose fluctuation [Unknown]
  - Blood cholesterol abnormal [Unknown]
  - Hypertension [Unknown]
  - Cardiac disorder [Unknown]
  - Blood glucose increased [Unknown]
